FAERS Safety Report 6402212-4 (Version None)
Quarter: 2009Q4

REPORT INFORMATION
  Report Type: 
  Country: None (occurrence: None)
  Receive Date: 20091014
  Receipt Date: 20091014
  Transmission Date: 20100525
  Serious: Yes (Other)
  Sender: FDA-Public Use
  Company Number: None

PATIENT
  Sex: Female
  Weight: 72.5755 kg

DRUGS (2)
  1. CLOBETASOL PROPIONATE [Suspect]
     Indication: RASH
     Dosage: 0.05% TWICE DAILY
     Route: 061
     Dates: start: 20090831
  2. CLOBETASOL PROPIONATE [Suspect]
     Indication: SYSTEMIC LUPUS ERYTHEMATOSUS
     Dosage: 0.05% TWICE DAILY
     Route: 061
     Dates: start: 20090831

REACTIONS (1)
  - SKIN ULCER [None]
